FAERS Safety Report 17866205 (Version 2)
Quarter: 2020Q2

REPORT INFORMATION
  Report Type: Spontaneous
  Country: US (occurrence: US)
  Receive Date: 20200605
  Receipt Date: 20200605
  Transmission Date: 20200714
  Serious: No
  Sender: FDA-Public Use
  Company Number: US-PFIZER INC-2020212126

PATIENT
  Age: 82 Year
  Sex: Female

DRUGS (3)
  1. IBRANCE [Suspect]
     Active Substance: PALBOCICLIB
     Dosage: 125 MG
  2. IBRANCE [Suspect]
     Active Substance: PALBOCICLIB
     Dosage: (TAKE 1 TABLET (100 MG TOTAL) BY MOUTH AS DIRECTED. TAKE 1 TABLET EVERY OTHER DAY,ALTERNATING WITH T
     Route: 048
  3. IBRANCE [Suspect]
     Active Substance: PALBOCICLIB
     Indication: BREAST CANCER METASTATIC
     Dosage: 1 TABLET (125MG) EVERY OTHER DAY, ALTERNATING WITH THE 100MG TABLET FOR THE 21 DAYS
     Route: 048

REACTIONS (3)
  - Nervousness [Unknown]
  - Product use issue [Unknown]
  - Off label use [Unknown]
